FAERS Safety Report 7941431-2 (Version None)
Quarter: 2011Q4

REPORT INFORMATION
  Report Type: 
  Country: None (occurrence: None)
  Receive Date: 20111122
  Receipt Date: 20111107
  Transmission Date: 20120403
  Serious: Yes (Hospitalization)
  Sender: FDA-Public Use
  Company Number: 1000025457

PATIENT
  Age: 51 Year
  Sex: Male

DRUGS (4)
  1. ZOPICLON (ZOPICLONE) [Concomitant]
  2. CITALOPRAM HYDROBROMIDE [Suspect]
     Dosage: 40 MG (40 MG, 1 IN 1 D), ORAL
     Route: 048
     Dates: start: 20110519, end: 20110720
  3. MIRTAZAPINE [Suspect]
     Dosage: 30 MG (30 MG, 1 IN 1 D), ORAL
     Route: 048
     Dates: start: 20110727, end: 20110808
  4. ATACAND (CANDESARTAN CILEXETIL0 (CANDESARTAN CILEXETIL) [Concomitant]

REACTIONS (5)
  - POTENTIATING DRUG INTERACTION [None]
  - BIPOLAR DISORDER [None]
  - WEIGHT INCREASED [None]
  - HEPATIC ENZYME INCREASED [None]
  - DEPRESSION [None]
